FAERS Safety Report 20752800 (Version 1)
Quarter: 2022Q2

REPORT INFORMATION
  Report Type: Spontaneous
  Country: US (occurrence: None)
  Receive Date: 20220426
  Receipt Date: 20220426
  Transmission Date: 20220721
  Serious: No
  Sender: FDA-Public Use
  Company Number: US-ROCHE-2886462

PATIENT
  Sex: Male

DRUGS (1)
  1. ESBRIET [Suspect]
     Active Substance: PIRFENIDONE
     Indication: Idiopathic pulmonary fibrosis
     Dosage: TAKE 1 TAB 3 TIMES DAILY X 1 WEEK, THEN 2 TABS 3 TIMES DAILY X 1 WEEK, THEN 3 TABS 3 TIMES DAILY WIT
     Route: 048

REACTIONS (2)
  - Fatigue [Unknown]
  - Arthralgia [Unknown]
